FAERS Safety Report 8621904-X (Version None)
Quarter: 2012Q3

REPORT INFORMATION
  Report Type: 
  Country: None (occurrence: None)
  Receive Date: 20120822
  Receipt Date: 20120822
  Transmission Date: 20120928
  Serious: Yes (Life-Threatening, Hospitalization, Disabling)
  Sender: FDA-Public Use
  Company Number: None

PATIENT
  Age: 90 Year
  Sex: Male
  Weight: 90 kg

DRUGS (1)
  1. COUMADIN [Suspect]
     Dosage: 5MG DAILY PO
     Route: 048

REACTIONS (1)
  - CEREBRAL HAEMORRHAGE [None]
